FAERS Safety Report 12408956 (Version 1)
Quarter: 2016Q2

REPORT INFORMATION
  Report Type: Spontaneous
  Country: US (occurrence: US)
  Receive Date: 20160526
  Receipt Date: 20160526
  Transmission Date: 20160815
  Serious: Yes (Other)
  Sender: FDA-Public Use
  Company Number: US-GLAXOSMITHKLINE-US2016GSK074017

PATIENT
  Sex: Female

DRUGS (2)
  1. LAMICTAL [Suspect]
     Active Substance: LAMOTRIGINE
     Indication: SEIZURE
     Dosage: UNK
     Dates: start: 1998
  2. LAMOTRIGINE. [Suspect]
     Active Substance: LAMOTRIGINE
     Indication: SEIZURE
     Dosage: UNK

REACTIONS (5)
  - Rib fracture [Unknown]
  - Back injury [Unknown]
  - Drug ineffective [Unknown]
  - Circumstance or information capable of leading to medication error [Unknown]
  - Generalised tonic-clonic seizure [Unknown]
